FAERS Safety Report 9699581 (Version 2)
Quarter: 2013Q4

REPORT INFORMATION
  Report Type: Report from Study
  Country: JP (occurrence: JP)
  Receive Date: 20131120
  Receipt Date: 20131129
  Transmission Date: 20140711
  Serious: Yes (Other)
  Sender: FDA-Public Use
  Company Number: JP-ASTRAZENECA-2013SE84305

PATIENT
  Age: 28462 Day
  Sex: Male

DRUGS (13)
  1. AZD6140 [Suspect]
     Indication: CORONARY ARTERY DISEASE
     Route: 048
     Dates: start: 20120606, end: 20130125
  2. AZD6140 [Suspect]
     Indication: CORONARY ARTERY DISEASE
     Route: 048
     Dates: start: 20130322
  3. SANMEL [Concomitant]
     Indication: HAEMOSTASIS
     Route: 048
     Dates: start: 20130316
  4. IMIDAPRIL HYDROCHLORIDE [Concomitant]
     Indication: HYPERTENSION
     Route: 048
     Dates: start: 20130319
  5. CRESTOR [Concomitant]
     Indication: HYPERLIPIDAEMIA
     Route: 048
     Dates: end: 20130315
  6. CRESTOR [Concomitant]
     Indication: HYPERLIPIDAEMIA
     Route: 048
     Dates: start: 20130319
  7. FAMOTIDINE [Concomitant]
     Indication: GASTRITIS PROPHYLAXIS
     Route: 048
     Dates: start: 20130422
  8. SAWACILLIN [Concomitant]
     Indication: HELICOBACTER INFECTION
     Route: 048
     Dates: start: 20130622
  9. KARY UNI [Concomitant]
     Indication: CATARACT
     Route: 047
  10. PARIET [Concomitant]
     Indication: HELICOBACTER INFECTION
     Route: 048
     Dates: start: 20130622
  11. FLAGYL [Concomitant]
     Indication: HELICOBACTER INFECTION
     Route: 048
     Dates: start: 20130622
  12. ASA [Concomitant]
     Route: 048
     Dates: end: 20130224
  13. ASA [Concomitant]
     Route: 048
     Dates: start: 20130319

REACTIONS (1)
  - Gastric cancer recurrent [Not Recovered/Not Resolved]
